FAERS Safety Report 7573787-7 (Version None)
Quarter: 2011Q2

REPORT INFORMATION
  Report Type: 
  Country: None (occurrence: None)
  Receive Date: 20110627
  Receipt Date: 20110620
  Transmission Date: 20111010
  Serious: Yes (Hospitalization)
  Sender: FDA-Public Use
  Company Number: GB-GENZYME-CAMP-1000956

PATIENT
  Age: 60 Year
  Sex: Female

DRUGS (1)
  1. CAMPATH [Suspect]
     Indication: CHRONIC LYMPHOCYTIC LEUKAEMIA
     Dosage: 30 MG, TIW
     Route: 058

REACTIONS (3)
  - CHILLS [None]
  - PYREXIA [None]
  - ADVERSE DRUG REACTION [None]
